FAERS Safety Report 16513925 (Version 1)
Quarter: 2019Q3

REPORT INFORMATION
  Report Type: Spontaneous
  Country: ES (occurrence: ES)
  Receive Date: 20190702
  Receipt Date: 20190702
  Transmission Date: 20191004
  Serious: Yes (Hospitalization)
  Sender: FDA-Public Use
  Company Number: ES-MYLANLABS-2019M1060282

PATIENT
  Age: 82 Year
  Sex: Male

DRUGS (14)
  1. LINACLOTIDE [Concomitant]
     Active Substance: LINACLOTIDE
     Dosage: 290 ?G, DAILY
  2. ATORVASTATIN [Concomitant]
     Active Substance: ATORVASTATIN
     Dosage: 80 MG, DAILY
  3. RAMIPRIL. [Concomitant]
     Active Substance: RAMIPRIL
     Dosage: 2.5 MG, DAILY
  4. LORAZEPAM. [Concomitant]
     Active Substance: LORAZEPAM
     Dosage: 1 MG, DAILY AT NIGHT
  5. METOCLOPRAMIDE. [Concomitant]
     Active Substance: METOCLOPRAMIDE
     Dosage: UNK, EVERY 8 HOURS, 3X / DAY
  6. NITROGLYCERINE [Concomitant]
     Active Substance: NITROGLYCERIN
     Dosage: UNK
  7. TAMSULOSIN [Concomitant]
     Active Substance: TAMSULOSIN
     Dosage: 0.4 MG, DAILY
  8. OMEPRAZOLE. [Suspect]
     Active Substance: OMEPRAZOLE
     Indication: PRODUCT USED FOR UNKNOWN INDICATION
     Dosage: 20 MILLIGRAM
     Route: 065
  9. BISOPROLOL [Concomitant]
     Active Substance: BISOPROLOL
     Dosage: 2.5 MG, DAILY
  10. VENLAFAXINE [Concomitant]
     Active Substance: VENLAFAXINE HYDROCHLORIDE
     Dosage: 75 MG, DAILY
  11. LINEZOLID. [Concomitant]
     Active Substance: LINEZOLID
     Indication: SUPERINFECTION BACTERIAL
     Dosage: 600 MG/12 HOURS
  12. ASPIRIN                            /00002701/ [Concomitant]
     Active Substance: ASPIRIN
     Dosage: 100 MG, DAILY
  13. METAMIZOLE [Concomitant]
     Active Substance: METAMIZOLE
     Dosage: 575 MG/8H, 3X / DAY
  14. HEPARIN [Concomitant]
     Active Substance: HEPARIN SODIUM
     Dosage: 40 MG, DAILY

REACTIONS (6)
  - Constipation [Unknown]
  - Microcytic anaemia [Unknown]
  - Product use issue [Unknown]
  - Weight decreased [Unknown]
  - Generalised tonic-clonic seizure [Recovered/Resolved]
  - Hyponatraemia [Unknown]
